FAERS Safety Report 4639615-4 (Version None)
Quarter: 2005Q2

REPORT INFORMATION
  Report Type: 
  Country: None (occurrence: None)
  Receive Date: 20050328
  Receipt Date: 20041230
  Transmission Date: 20051028
  Serious: No
  Sender: FDA-Public Use
  Company Number: USA050187211

PATIENT
  Age: 10 Year
  Sex: Female
  Weight: 36 kg

DRUGS (2)
  1. STRATTERA [Suspect]
     Indication: ATTENTION DEFICIT/HYPERACTIVITY DISORDER
     Dosage: 70 MG DAY
     Dates: start: 20030101
  2. LEXAPRO [Concomitant]

REACTIONS (1)
  - PRESCRIBED OVERDOSE [None]
